FAERS Safety Report 8686838 (Version 3)
Quarter: 2012Q4

REPORT INFORMATION
  Report Type: 
  Country: US (occurrence: US)
  Receive Date: 20120727
  Receipt Date: 20121018
  Transmission Date: 20130627
  Serious: No
  Sender: FDA-Public Use
  Company Number: US-PFIZER INC-2012179187

PATIENT
  Age: 26 Year
  Sex: Female
  Weight: 74.38 kg

DRUGS (5)
  1. PRISTIQ [Suspect]
     Indication: DEPRESSION
     Dosage: 50 mg, 1x/day
     Route: 048
     Dates: start: 20100516, end: 20120706
  2. PRISTIQ [Suspect]
     Indication: ANXIETY
     Dosage: 1/2 (25 mg) 1x/day
     Route: 048
     Dates: start: 20120707, end: 201207
  3. PRISTIQ [Suspect]
     Dosage: 1/2 (25 mg) alternate day
     Dates: start: 201207, end: 201207
  4. ZYRTEC [Concomitant]
     Indication: HYPERSENSITIVITY
     Dosage: 10 mg, 1x/day
     Route: 048
  5. RITALIN [Concomitant]
     Dosage: 10 mg, 2x/day
     Route: 048

REACTIONS (2)
  - Withdrawal syndrome [Unknown]
  - Chest discomfort [Unknown]
